FAERS Safety Report 6079994-7 (Version None)
Quarter: 2009Q1

REPORT INFORMATION
  Report Type: 
  Country: None (occurrence: None)
  Receive Date: 20090217
  Receipt Date: 20081222
  Transmission Date: 20090719
  Serious: No
  Sender: FDA-Public Use
  Company Number: A0761219A

PATIENT

DRUGS (1)
  1. COREG CR [Suspect]
     Route: 048

REACTIONS (2)
  - HYPOAESTHESIA [None]
  - PARAESTHESIA [None]
